FAERS Safety Report 25649905 (Version 1)
Quarter: 2025Q3

REPORT INFORMATION
  Report Type: Spontaneous
  Country: US (occurrence: None)
  Receive Date: 20250805
  Receipt Date: 20250805
  Transmission Date: 20251021
  Serious: No
  Sender: FDA-CTU
  Company Number: None

PATIENT
  Age: 57 Year
  Sex: Female

DRUGS (1)
  1. ESCITALOPRAM [Suspect]
     Active Substance: ESCITALOPRAM OXALATE
     Indication: Depressed mood
     Dosage: FREQUENCY : DAILY;?
     Route: 048

REACTIONS (9)
  - Withdrawal syndrome [None]
  - Inappropriate schedule of product discontinuation [None]
  - Influenza like illness [None]
  - Fatigue [None]
  - Anxiety [None]
  - Lacrimation increased [None]
  - Hyperacusis [None]
  - Sleep disorder [None]
  - Thinking abnormal [None]
